FAERS Safety Report 7928087-X (Version None)
Quarter: 2011Q4

REPORT INFORMATION
  Report Type: 
  Country: None (occurrence: None)
  Receive Date: 20111118
  Receipt Date: 20111110
  Transmission Date: 20120403
  Serious: Yes (Other)
  Sender: FDA-Public Use
  Company Number: AU-GLAXOSMITHKLINE-B0755176A

PATIENT
  Sex: Male

DRUGS (8)
  1. PREDNISONE TAB [Suspect]
     Indication: MULTIPLE MYELOMA
     Route: 065
  2. ASPIRIN [Concomitant]
     Indication: THROMBOSIS PROPHYLAXIS
     Route: 065
  3. MELPHALAN HYDROCHLORIDE [Suspect]
     Indication: MULTIPLE MYELOMA
     Route: 065
     Dates: start: 20070623, end: 20080204
  4. PLACEBO [Suspect]
     Indication: MULTIPLE MYELOMA
     Route: 048
  5. PAMIDRONATE DISODIUM [Concomitant]
     Indication: MULTIPLE MYELOMA
     Route: 065
  6. BETAMETHASONE VALERATE [Concomitant]
     Indication: URTICARIA
     Route: 065
  7. LACTULOSE [Concomitant]
     Indication: CONSTIPATION
     Route: 065
  8. LENALIDOMIDE [Suspect]
     Indication: MULTIPLE MYELOMA
     Dosage: 15MG PER DAY
     Route: 048
     Dates: start: 20081011

REACTIONS (2)
  - SQUAMOUS CELL CARCINOMA [None]
  - ACTINIC KERATOSIS [None]
